FAERS Safety Report 13440580 (Version 2)
Quarter: 2017Q3

REPORT INFORMATION
  Report Type: Spontaneous
  Country: AU (occurrence: AU)
  Receive Date: 20170413
  Receipt Date: 20170817
  Transmission Date: 20171127
  Serious: Yes (Hospitalization, Other)
  Sender: FDA-Public Use
  Company Number: AU-SHIRE-AU201708273

PATIENT

DRUGS (2)
  1. FLUOXETINE [Concomitant]
     Active Substance: FLUOXETINE HYDROCHLORIDE
     Indication: DEPRESSION
     Route: 065
  2. VYVANSE [Suspect]
     Active Substance: LISDEXAMFETAMINE DIMESYLATE
     Indication: DRUG DIVERSION
     Dosage: 350 MG, ONE DOSE (FIVE 70 MG CAPSULES AT ONE TIME)
     Route: 048
     Dates: start: 2017, end: 2017

REACTIONS (8)
  - Tachycardia [Unknown]
  - Intentional overdose [Recovered/Resolved]
  - Mydriasis [Unknown]
  - Headache [Unknown]
  - Nausea [Unknown]
  - Intentional product misuse [Recovered/Resolved]
  - Drug diversion [Recovered/Resolved]
  - Anxiety [Unknown]

NARRATIVE: CASE EVENT DATE: 2017
